FAERS Safety Report 17711562 (Version 3)
Quarter: 2020Q4

REPORT INFORMATION
  Report Type: Spontaneous
  Country: MX (occurrence: MX)
  Receive Date: 20200427
  Receipt Date: 20201013
  Transmission Date: 20210113
  Serious: Yes (Other)
  Sender: FDA-Public Use
  Company Number: MX-ABBVIE-20P-107-3380431-00

PATIENT

DRUGS (1)
  1. EPIVAL [Suspect]
     Active Substance: DIVALPROEX SODIUM
     Indication: PRODUCT USED FOR UNKNOWN INDICATION
     Dosage: DOSES HIGHER THAN 2000 MG
     Route: 065

REACTIONS (1)
  - Parkinson^s disease [Unknown]
